FAERS Safety Report 7496464-X (Version None)
Quarter: 2011Q2

REPORT INFORMATION
  Report Type: 
  Country: None (occurrence: None)
  Receive Date: 20110523
  Receipt Date: 20110509
  Transmission Date: 20111010
  Serious: Yes (Life-Threatening, Hospitalization, Other)
  Sender: FDA-Public Use
  Company Number: JP-ROCHE-699200

PATIENT
  Sex: Male
  Weight: 81 kg

DRUGS (4)
  1. TOPOTECIN [Concomitant]
     Route: 041
     Dates: start: 20091218, end: 20100318
  2. FLUOROURACIL [Concomitant]
     Route: 041
     Dates: start: 20091218, end: 20100319
  3. ISOVORIN [Concomitant]
     Route: 041
     Dates: start: 20091218, end: 20100319
  4. AVASTIN [Suspect]
     Indication: RECTAL CANCER METASTATIC
     Route: 041
     Dates: start: 20091218, end: 20100320

REACTIONS (7)
  - ESCHERICHIA TEST POSITIVE [None]
  - CHOLELITHIASIS [None]
  - HEPATIC FUNCTION ABNORMAL [None]
  - ANAEMIA [None]
  - ANEURYSM [None]
  - ANEURYSM RUPTURED [None]
  - HAEMOBILIA [None]
